FAERS Safety Report 5119870-7 (Version None)
Quarter: 2006Q4

REPORT INFORMATION
  Report Type: 
  Country: None (occurrence: None)
  Receive Date: 20061003
  Receipt Date: 20060720
  Transmission Date: 20070319
  Serious: Yes (Life-Threatening, Hospitalization)
  Sender: FDA-Public Use
  Company Number: JP-BOEHRINGER INGELHEIM PHARMACEUTICALS, INC.-2006-BP-08699NB

PATIENT
  Sex: Male
  Weight: 88 kg

DRUGS (8)
  1. MICARDIS [Suspect]
     Indication: HYPERTENSION
     Route: 048
     Dates: start: 20060518, end: 20060718
  2. SOLANAX [Suspect]
     Indication: DEPRESSION
     Route: 048
     Dates: end: 20060718
  3. SULPIRIDE [Suspect]
     Indication: DEPRESSION
     Route: 048
     Dates: end: 20060718
  4. TOLEDOMIN [Suspect]
     Indication: DEPRESSION
     Route: 048
     Dates: end: 20060718
  5. ASASION [Suspect]
     Indication: INSOMNIA
     Route: 048
     Dates: end: 20060718
  6. ZYPREXA [Suspect]
     Indication: DEPRESSION
     Route: 048
     Dates: end: 20060718
  7. ANAFRANIL [Suspect]
     Indication: DEPRESSION
     Route: 048
     Dates: end: 20060718
  8. LENDORMIN [Suspect]
     Indication: INSOMNIA
     Route: 048
     Dates: end: 20060718

REACTIONS (3)
  - DEPRESSED LEVEL OF CONSCIOUSNESS [None]
  - HYPOGLYCAEMIA [None]
  - OVERDOSE [None]
